FAERS Safety Report 11923712 (Version 2)
Quarter: 2016Q1

REPORT INFORMATION
  Report Type: Spontaneous
  Country: US (occurrence: US)
  Receive Date: 20160118
  Receipt Date: 20160208
  Transmission Date: 20160526
  Serious: No
  Sender: FDA-Public Use
  Company Number: US-PFIZER INC-2016023320

PATIENT
  Age: 52 Year
  Sex: Male
  Weight: 83 kg

DRUGS (2)
  1. RELPAX [Suspect]
     Active Substance: ELETRIPTAN HYDROBROMIDE
     Indication: MIGRAINE
     Dosage: JUST 1 PILL ONCE A MONTH
     Route: 048
  2. EXCEDRIN [Concomitant]
     Active Substance: ACETAMINOPHEN\ASPIRIN\CAFFEINE
     Dosage: UNK

REACTIONS (2)
  - Pain in jaw [Unknown]
  - Toothache [Unknown]

NARRATIVE: CASE EVENT DATE: 20160112
